FAERS Safety Report 9262508 (Version 2)
Quarter: 2013Q4

REPORT INFORMATION
  Report Type: Report from Study
  Country: US (occurrence: US)
  Receive Date: 20130430
  Receipt Date: 20131108
  Transmission Date: 20140711
  Serious: Yes (Hospitalization, Other)
  Sender: FDA-Public Use
  Company Number: US-ROCHE-1219207

PATIENT
  Age: 46 Year
  Sex: Female
  Weight: 76.27 kg

DRUGS (13)
  1. ACTEMRA [Suspect]
     Indication: RHEUMATOID ARTHRITIS
     Route: 042
     Dates: start: 201211
  2. ACTEMRA [Suspect]
     Route: 042
     Dates: start: 20130411
  3. ACTEMRA [Suspect]
     Route: 042
     Dates: start: 201210
  4. ACTEMRA [Suspect]
     Route: 042
     Dates: start: 20131024
  5. ACTEMRA [Suspect]
     Route: 042
     Dates: start: 201309
  6. ACTEMRA [Suspect]
     Route: 042
     Dates: start: 201308
  7. ACTEMRA [Suspect]
     Route: 042
     Dates: start: 201307
  8. METHOTREXATE [Concomitant]
  9. PLAQUENIL [Concomitant]
  10. ARAVA [Concomitant]
  11. ENBREL [Concomitant]
     Route: 058
  12. HUMIRA [Concomitant]
     Route: 058
  13. RITUXIMAB [Concomitant]
     Route: 042

REACTIONS (9)
  - Bone pain [Recovered/Resolved]
  - Oropharyngeal pain [Unknown]
  - Rash [Unknown]
  - Rash [Unknown]
  - Abdominal pain lower [Recovering/Resolving]
  - Oropharyngeal pain [Not Recovered/Not Resolved]
  - Oral pain [Not Recovered/Not Resolved]
  - Fatigue [Not Recovered/Not Resolved]
  - Abdominal pain upper [Recovered/Resolved]
